FAERS Safety Report 24062419 (Version 1)
Quarter: 2024Q3

REPORT INFORMATION
  Report Type: Spontaneous
  Country: CN (occurrence: CN)
  Receive Date: 20240708
  Receipt Date: 20240708
  Transmission Date: 20241017
  Serious: Yes (Hospitalization, Disabling)
  Sender: EISAI
  Company Number: CN-Eisai-EC-2024-169265

PATIENT
  Age: 46 Year
  Sex: Male
  Weight: 51 kg

DRUGS (2)
  1. LENVATINIB [Suspect]
     Active Substance: LENVATINIB
     Indication: Hepatocellular carcinoma
     Route: 048
     Dates: start: 20240415, end: 20240614
  2. KEYTRUDA [Concomitant]
     Active Substance: PEMBROLIZUMAB
     Indication: Hepatocellular carcinoma
     Route: 041
     Dates: start: 20240514, end: 20240606

REACTIONS (2)
  - Proteinuria [Not Recovered/Not Resolved]
  - Haematuria [Not Recovered/Not Resolved]

NARRATIVE: CASE EVENT DATE: 20240614
